FAERS Safety Report 7686208-0 (Version None)
Quarter: 2011Q3

REPORT INFORMATION
  Report Type: 
  Country: None (occurrence: None)
  Receive Date: 20110816
  Receipt Date: 20110728
  Transmission Date: 20111222
  Serious: Yes (Hospitalization)
  Sender: FDA-Public Use
  Company Number: CH-ELI_LILLY_AND_COMPANY-CH201108004531

PATIENT
  Age: 78 Year
  Sex: Female

DRUGS (5)
  1. DANCOR [Concomitant]
  2. PERINDOPRIL ERBUMINE [Concomitant]
  3. EZETIMIBE [Concomitant]
  4. RALOXIFENE HYDROCHLORIDE [Suspect]
  5. SERETIDE [Concomitant]

REACTIONS (1)
  - TELANGIECTASIA [None]
